FAERS Safety Report 9307658 (Version 1)
Quarter: 2013Q2

REPORT INFORMATION
  Report Type: Spontaneous
  Country: US (occurrence: US)
  Receive Date: 20130524
  Receipt Date: 20130524
  Transmission Date: 20140414
  Serious: No
  Sender: FDA-Public Use
  Company Number: US-PFIZER INC-2013156164

PATIENT
  Age: 46 Year
  Sex: Female
  Weight: 54.88 kg

DRUGS (3)
  1. PROTONIX [Suspect]
     Indication: GASTROOESOPHAGEAL REFLUX DISEASE
     Dosage: 40 MG, 1X/DAY
     Route: 048
  2. CLONAZEPAM [Concomitant]
     Dosage: UNK
  3. ADVAIR [Concomitant]
     Indication: ASTHMA
     Dosage: UNK

REACTIONS (2)
  - Tablet physical issue [Unknown]
  - Drug ineffective [Unknown]
